FAERS Safety Report 8095748-4 (Version None)
Quarter: 2012Q1

REPORT INFORMATION
  Report Type: 
  Country: None (occurrence: None)
  Receive Date: 20120131
  Receipt Date: 20120118
  Transmission Date: 20120608
  Serious: Yes (Hospitalization, Other)
  Sender: FDA-Public Use
  Company Number: US-ELI_LILLY_AND_COMPANY-US201201005935

PATIENT
  Sex: Female

DRUGS (19)
  1. FORTEO [Suspect]
     Indication: OSTEOPOROSIS
     Dosage: 20 UG, QD
  2. MAGNESIUM OXIDE [Concomitant]
  3. ADVAIR DISKUS 100/50 [Concomitant]
  4. OXYGEN [Concomitant]
     Indication: DYSPNOEA
  5. CITALOPRAM [Concomitant]
  6. SYNTHROID [Concomitant]
  7. SPIRIVA [Concomitant]
  8. CYMBALTA [Concomitant]
     Indication: PAIN
     Dosage: 30 MG, QD
     Dates: start: 20111001
  9. PRAVACHOL [Concomitant]
  10. PREDNISONE TAB [Concomitant]
  11. BUFFERIN [Concomitant]
  12. FORTEO [Suspect]
     Dosage: 20 UG, QD
  13. VASOTEC [Concomitant]
  14. LUNESTA [Concomitant]
     Indication: INSOMNIA
  15. ASPIRIN [Concomitant]
  16. PERCOCET [Concomitant]
  17. DITROPAN [Concomitant]
  18. AMITRIPTYLINE HCL [Concomitant]
  19. VITAMIN D [Concomitant]

REACTIONS (7)
  - FALL [None]
  - CHRONIC OBSTRUCTIVE PULMONARY DISEASE [None]
  - KIDNEY INFECTION [None]
  - DYSSTASIA [None]
  - CYSTITIS [None]
  - SPINAL FRACTURE [None]
  - DYSPNOEA [None]
